FAERS Safety Report 6836868-9 (Version None)
Quarter: 2010Q3

REPORT INFORMATION
  Report Type: 
  Country: None (occurrence: None)
  Receive Date: 20100713
  Receipt Date: 20070428
  Transmission Date: 20110219
  Serious: No
  Sender: FDA-Public Use
  Company Number: US-PFIZER INC-2007035859

PATIENT
  Sex: Female
  Weight: 65.77 kg

DRUGS (3)
  1. CHANTIX [Suspect]
     Indication: SMOKING CESSATION THERAPY
     Dates: start: 20070401
  2. AVELOX [Concomitant]
  3. LEXAPRO [Concomitant]

REACTIONS (4)
  - ABNORMAL DREAMS [None]
  - ABNORMAL SLEEP-RELATED EVENT [None]
  - BRONCHITIS [None]
  - NAUSEA [None]
